FAERS Safety Report 5807699-3 (Version None)
Quarter: 2008Q3

REPORT INFORMATION
  Report Type: 
  Country: None (occurrence: None)
  Receive Date: 20080711
  Receipt Date: 20080703
  Transmission Date: 20090109
  Serious: Yes (Other)
  Sender: FDA-Public Use
  Company Number: GB-AVENTIS-200816454GDDC

PATIENT
  Age: 77 Year
  Sex: Male

DRUGS (4)
  1. EUGLUCON [Suspect]
     Route: 048
     Dates: start: 20050101, end: 20080530
  2. METFORAL [Suspect]
     Route: 048
     Dates: start: 20050101, end: 20080530
  3. MADOPAR                            /00349201/ [Concomitant]
     Dates: start: 20050101, end: 20080530
  4. TACHIPIRINA [Concomitant]
     Dates: start: 20080529, end: 20080529

REACTIONS (2)
  - BLOOD GLUCOSE DECREASED [None]
  - SYNCOPE [None]
